FAERS Safety Report 5071637-4 (Version None)
Quarter: 2006Q3

REPORT INFORMATION
  Report Type: 
  Country: None (occurrence: None)
  Receive Date: 20060804
  Receipt Date: 20060217
  Transmission Date: 20061208
  Serious: Yes (Hospitalization)
  Sender: FDA-Public Use
  Company Number: 2006UW02911

PATIENT
  Age: 10 Year
  Sex: Female
  Weight: 35 kg

DRUGS (4)
  1. SEROQUEL [Suspect]
     Indication: BIPOLAR DISORDER
     Route: 048
     Dates: start: 20060203, end: 20060215
  2. AMOXICILLIN [Concomitant]
     Indication: UPPER RESPIRATORY TRACT INFECTION
     Route: 048
     Dates: start: 20060203, end: 20060213
  3. AMOXICILLIN [Concomitant]
     Indication: PHARYNGITIS STREPTOCOCCAL
     Route: 048
     Dates: start: 20060203, end: 20060213
  4. AMOXICILLIN [Concomitant]
     Indication: CONJUNCTIVITIS
     Route: 048
     Dates: start: 20060203, end: 20060213

REACTIONS (2)
  - DRUG HYPERSENSITIVITY [None]
  - DRUG RASH WITH EOSINOPHILIA AND SYSTEMIC SYMPTOMS [None]
